FAERS Safety Report 7206725-7 (Version None)
Quarter: 2010Q4

REPORT INFORMATION
  Report Type: 
  Country: None (occurrence: None)
  Receive Date: 20101217
  Receipt Date: 20101208
  Transmission Date: 20110411
  Serious: Yes (Hospitalization)
  Sender: FDA-Public Use
  Company Number: 2010US004999

PATIENT
  Age: 62 Year
  Sex: Male
  Weight: 82 kg

DRUGS (6)
  1. PROGRAF [Suspect]
     Indication: LIVER TRANSPLANT
     Dosage: 3 MG, BID, ORAL
     Route: 048
     Dates: start: 20091101
  2. DOCUSATE (DOCUSATE) [Concomitant]
  3. MAGNESIUM (MAGNESIUM) [Concomitant]
  4. ALLOPURINOL [Concomitant]
  5. GABAPENTIN [Concomitant]
  6. LANSOPRAZOLE [Concomitant]

REACTIONS (2)
  - COMA [None]
  - LIVER GRAFT LOSS [None]
